FAERS Safety Report 6613324-4 (Version None)
Quarter: 2010Q1

REPORT INFORMATION
  Report Type: 
  Country: None (occurrence: None)
  Receive Date: 20100304
  Receipt Date: 20100223
  Transmission Date: 20100710
  Serious: Yes (Hospitalization, Other)
  Sender: FDA-Public Use
  Company Number: PHHY2009CA40543

PATIENT
  Sex: Male

DRUGS (7)
  1. EXJADE [Suspect]
     Indication: THALASSAEMIA
     Dosage: 1500 MG, QD
     Route: 048
     Dates: start: 20080101
  2. EXJADE [Suspect]
     Dosage: 2000 MG, QD
     Route: 048
     Dates: start: 20080101
  3. EXJADE [Suspect]
     Dosage: 2500 MG, QD
     Route: 048
     Dates: start: 20080501
  4. FOLIC ACID [Concomitant]
     Dosage: 5 MG, QD
     Route: 048
  5. ACTONEL [Concomitant]
  6. VITAMIN D [Concomitant]
     Dosage: 1000 IU, QD
     Route: 048
  7. REACTINE [Concomitant]
     Dosage: 10 MG, QD
     Route: 048

REACTIONS (10)
  - DIARRHOEA [None]
  - INSOMNIA [None]
  - OEDEMA PERIPHERAL [None]
  - ORAL CANDIDIASIS [None]
  - PRURITUS GENERALISED [None]
  - PULMONARY FIBROSIS [None]
  - PULMONARY HYPERTENSION [None]
  - SERUM FERRITIN INCREASED [None]
  - STRESS [None]
  - URTICARIA [None]
